FAERS Safety Report 9887738 (Version 2)
Quarter: 2014Q1

REPORT INFORMATION
  Report Type: Spontaneous
  Country: US (occurrence: None)
  Receive Date: 20131223
  Receipt Date: 20140228
  Transmission Date: 20141002
  Serious: Yes (Other)
  Sender: FDA-Public Use
  Company Number: 220875

PATIENT
  Age: 61 Year
  Sex: Male

DRUGS (1)
  1. PICATO GEL [Suspect]
     Indication: ACTINIC KERATOSIS
     Route: 061
     Dates: start: 20140115, end: 20140116

REACTIONS (3)
  - Paraesthesia oral [None]
  - Headache [None]
  - Drug ineffective [None]
